FAERS Safety Report 6529994-5 (Version None)
Quarter: 2010Q1

REPORT INFORMATION
  Report Type: 
  Country: None (occurrence: None)
  Receive Date: 20100107
  Receipt Date: 20091228
  Transmission Date: 20100710
  Serious: Yes (Other)
  Sender: FDA-Public Use
  Company Number: JP-PFIZER INC-2009311867

PATIENT
  Age: 65 Year
  Sex: Female

DRUGS (3)
  1. VFEND [Suspect]
     Indication: BRONCHOPULMONARY ASPERGILLOSIS
     Dosage: 600 MG, 1X/DAY
     Route: 048
     Dates: start: 20091212, end: 20091212
  2. VFEND [Suspect]
     Dosage: 200 MG, 1X/DAY
     Route: 048
     Dates: start: 20091213, end: 20091216
  3. VFEND [Suspect]
     Dosage: 200 MG, 1X/DAY
     Route: 048
     Dates: start: 20091221

REACTIONS (2)
  - HALLUCINATION [None]
  - SPEECH DISORDER [None]
